FAERS Safety Report 7087405-8 (Version None)
Quarter: 2010Q4

REPORT INFORMATION
  Report Type: 
  Country: None (occurrence: None)
  Receive Date: 20101108
  Receipt Date: 20101029
  Transmission Date: 20110411
  Serious: No
  Sender: FDA-Public Use
  Company Number: US-BIOGENIDEC-2010BI019477

PATIENT
  Sex: Male

DRUGS (1)
  1. TYSABRI [Suspect]
     Indication: MULTIPLE SCLEROSIS
     Route: 042
     Dates: start: 20071130

REACTIONS (6)
  - CYSTITIS [None]
  - FALL [None]
  - LOSS OF CONSCIOUSNESS [None]
  - LYMPH NODE PAIN [None]
  - MUSCULAR WEAKNESS [None]
  - SYNCOPE [None]
